FAERS Safety Report 10357375 (Version 3)
Quarter: 2014Q3

REPORT INFORMATION
  Report Type: Spontaneous
  Country: US (occurrence: None)
  Receive Date: 20140730
  Receipt Date: 20140826
  Transmission Date: 20150326
  Serious: Yes (Hospitalization, Other)
  Sender: FDA-Public Use
  Company Number: ADR-2014-01321

PATIENT
  Age: 56 Year
  Sex: Male

DRUGS (6)
  1. CLONIDINE. [Suspect]
     Active Substance: CLONIDINE
     Route: 037
  2. MORPHINE [Suspect]
     Active Substance: MORPHINE
  3. FENTANYL. [Suspect]
     Active Substance: FENTANYL
     Indication: PAIN
  4. BACLOFEN. [Suspect]
     Active Substance: BACLOFEN
     Indication: PAIN
  5. BUPIVACAINE [Suspect]
     Active Substance: BUPIVACAINE
  6. MORPHINE ORAL [Suspect]
     Active Substance: MORPHINE

REACTIONS (14)
  - Device computer issue [None]
  - Chills [None]
  - Diarrhoea [None]
  - Nausea [None]
  - Hypotension [None]
  - Vomiting [None]
  - Hypoacusis [None]
  - Underdose [None]
  - Pain [None]
  - Respiratory disorder [None]
  - Withdrawal syndrome [None]
  - Depressed level of consciousness [None]
  - Accidental overdose [None]
  - Cerebrovascular accident [None]

NARRATIVE: CASE EVENT DATE: 20140715
